FAERS Safety Report 6530818-0 (Version None)
Quarter: 2010Q1

REPORT INFORMATION
  Report Type: 
  Country: None (occurrence: None)
  Receive Date: 20100108
  Receipt Date: 20090317
  Transmission Date: 20100710
  Serious: No
  Sender: FDA-Public Use
  Company Number: A0773833A

PATIENT
  Age: 71 Year
  Sex: Male

DRUGS (3)
  1. LOVAZA [Suspect]
     Dosage: 4G PER DAY
     Route: 048
  2. SIMVASTATIN [Concomitant]
  3. METOPROLOL TARTRATE [Concomitant]

REACTIONS (1)
  - GOUT [None]
